FAERS Safety Report 14531512 (Version 1)
Quarter: 2018Q1

REPORT INFORMATION
  Report Type: Spontaneous
  Country: US (occurrence: US)
  Receive Date: 20180214
  Receipt Date: 20180214
  Transmission Date: 20180509
  Serious: No
  Sender: FDA-Public Use
  Company Number: US-PERRIGO-18US000817

PATIENT
  Age: 83 Year
  Sex: Female

DRUGS (3)
  1. OMEPRAZOLE. [Concomitant]
     Active Substance: OMEPRAZOLE
     Indication: GASTROOESOPHAGEAL REFLUX DISEASE
     Dosage: 20 MG, QD
     Route: 048
  2. DESONIDE. [Suspect]
     Active Substance: DESONIDE
     Indication: PRURITUS
     Dosage: UNKNOWN, UNKNOWN
     Route: 061
  3. SUCRALFATE. [Concomitant]
     Active Substance: SUCRALFATE
     Indication: GASTROOESOPHAGEAL REFLUX DISEASE
     Dosage: 1 GM, FOUR TIMES DAILY
     Route: 048

REACTIONS (1)
  - Drug ineffective [Unknown]
